FAERS Safety Report 5656519-9 (Version None)
Quarter: 2008Q1

REPORT INFORMATION
  Report Type: 
  Country: None (occurrence: None)
  Receive Date: 20080309
  Receipt Date: 20080128
  Transmission Date: 20080703
  Serious: No
  Sender: FDA-Public Use
  Company Number: US-BAYER-200810465BCC

PATIENT
  Age: 78 Year
  Sex: Female
  Weight: 48 kg

DRUGS (8)
  1. ALEVE [Suspect]
     Indication: POSTOPERATIVE ANALGESIA
     Dosage: TOTAL DAILY DOSE: 880 MG  UNIT DOSE: 220 MG
     Route: 048
     Dates: start: 20080101, end: 20080127
  2. ALEVE [Suspect]
     Dosage: TOTAL DAILY DOSE: 880 MG  UNIT DOSE: 220 MG
     Route: 048
     Dates: start: 20080128
  3. LYRICA [Concomitant]
  4. DETROL [Concomitant]
  5. CLARINEX [Concomitant]
  6. ATENOLOL [Concomitant]
  7. PEPCID [Concomitant]
  8. CALTRATE [Concomitant]

REACTIONS (1)
  - CONTUSION [None]
